FAERS Safety Report 8479058-9 (Version None)
Quarter: 2012Q2

REPORT INFORMATION
  Report Type: 
  Country: None (occurrence: None)
  Receive Date: 20120629
  Receipt Date: 20120621
  Transmission Date: 20120825
  Serious: Yes (Other)
  Sender: FDA-Public Use
  Company Number: GB-JNJFOC-20120610673

PATIENT
  Sex: Female

DRUGS (6)
  1. IBUPROFEN [Concomitant]
     Route: 065
  2. IBUPROFEN [Concomitant]
     Route: 065
  3. NICORETTE [Suspect]
     Indication: SMOKING CESSATION THERAPY
     Route: 062
     Dates: start: 20120512, end: 20120519
  4. NICOTINE [Suspect]
     Indication: PRODUCT USED FOR UNKNOWN INDICATION
     Route: 048
     Dates: start: 20120501, end: 20120519
  5. BENDROFLUMETHIAZIDE [Concomitant]
     Route: 065
  6. NICORETTE [Suspect]
     Route: 062

REACTIONS (7)
  - RENAL PAIN [None]
  - BOWEL MOVEMENT IRREGULARITY [None]
  - DRY MOUTH [None]
  - FEELING COLD [None]
  - URINE ABNORMALITY [None]
  - PARAESTHESIA [None]
  - MALAISE [None]
